FAERS Safety Report 6597165-2 (Version None)
Quarter: 2010Q1

REPORT INFORMATION
  Report Type: 
  Country: None (occurrence: None)
  Receive Date: 20100223
  Receipt Date: 20100208
  Transmission Date: 20100710
  Serious: No
  Sender: FDA-Public Use
  Company Number: US-BAYER-201013781NA

PATIENT
  Age: 38 Year
  Sex: Female

DRUGS (1)
  1. MAGNEVIST [Suspect]
     Indication: DRUG USE FOR UNKNOWN INDICATION
     Dosage: AS USED: 12 ML
     Dates: start: 20100202, end: 20100202

REACTIONS (2)
  - OROPHARYNGEAL PAIN [None]
  - THROAT IRRITATION [None]
